FAERS Safety Report 24614298 (Version 6)
Quarter: 2025Q4

REPORT INFORMATION
  Report Type: Spontaneous
  Country: US (occurrence: US)
  Receive Date: 20241113
  Receipt Date: 20251126
  Transmission Date: 20260118
  Serious: Yes (Other)
  Sender: SUNOVION
  Company Number: US-SMPA-2024SPA005121AA

PATIENT
  Age: 71 Year
  Sex: Male

DRUGS (8)
  1. ORGOVYX [Suspect]
     Active Substance: RELUGOLIX
     Indication: Prostate cancer
     Dosage: 360 MG, SINGLE
     Route: 048
  2. ORGOVYX [Suspect]
     Active Substance: RELUGOLIX
     Dosage: 120 MG, QD (AROUND THE SAME TIME EACH DAY AFTER FIRST DAY)
     Route: 048
     Dates: start: 20250106
  3. CELECOXIB [Concomitant]
     Active Substance: CELECOXIB
     Dosage: 200 MG, BID
  4. TAMSULOSIN [Concomitant]
     Active Substance: TAMSULOSIN
     Dosage: 0.4 MG, QD
  5. FINASTERIDE [Concomitant]
     Active Substance: FINASTERIDE
     Dosage: 5 MG, QD
  6. TERBINAFINE [Concomitant]
     Active Substance: TERBINAFINE
     Dosage: 250 MG, QD
  7. IRON [Concomitant]
     Active Substance: IRON
     Dosage: 65 MG, QD
  8. VITAMIN D3 [Concomitant]
     Active Substance: CHOLECALCIFEROL
     Dosage: 50 MG (2000 IUS), QD

REACTIONS (14)
  - Skin neoplasm excision [Unknown]
  - Insomnia [Unknown]
  - Asthenia [Unknown]
  - Arthralgia [Unknown]
  - Hot flush [Not Recovered/Not Resolved]
  - Alopecia [Unknown]
  - General physical health deterioration [Unknown]
  - Overweight [Unknown]
  - Condition aggravated [Not Recovered/Not Resolved]
  - Discomfort [Unknown]
  - Pollakiuria [Unknown]
  - Vitamin D decreased [Unknown]
  - Tooth disorder [Unknown]
  - Onychomycosis [Unknown]
